FAERS Safety Report 6060081-9 (Version None)
Quarter: 2009Q1

REPORT INFORMATION
  Report Type: 
  Country: None (occurrence: None)
  Receive Date: 20090130
  Receipt Date: 20090120
  Transmission Date: 20090719
  Serious: Yes (Death, Other)
  Sender: FDA-Public Use
  Company Number: US-ELI_LILLY_AND_COMPANY-US200812005479

PATIENT
  Age: 54 Year
  Sex: Male

DRUGS (3)
  1. CYMBALTA [Suspect]
     Dates: end: 20080904
  2. INSULIN [Concomitant]
  3. ANTI-HYPERTENSIVE AGENT [Concomitant]

REACTIONS (4)
  - ALCOHOL ABUSE [None]
  - DIZZINESS [None]
  - LOSS OF CONSCIOUSNESS [None]
  - MYOCARDIAL INFARCTION [None]
